FAERS Safety Report 15133703 (Version 1)
Quarter: 2018Q3

REPORT INFORMATION
  Report Type: Spontaneous
  Country: US (occurrence: US)
  Receive Date: 20180615
  Receipt Date: 20180615
  Transmission Date: 20181010
  Serious: Yes (Hospitalization)
  Sender: FDA-Public Use
  Company Number: None

PATIENT
  Age: 32 Year
  Sex: Female
  Weight: 79.2 kg

DRUGS (4)
  1. OXCARBAZEPINE. [Suspect]
     Active Substance: OXCARBAZEPINE
     Indication: BIPOLAR DISORDER
     Dosage: ?          QUANTITY:200 TABLET(S);OTHER ROUTE:MANIA?
     Dates: start: 20180421, end: 20180515
  2. OLANZIPINE [Concomitant]
     Active Substance: OLANZAPINE
  3. COFFEE [Concomitant]
     Active Substance: ARABICA COFFEE BEAN\COFFEE BEAN
  4. COLNAZEPAM [Concomitant]

REACTIONS (3)
  - Disturbance in attention [None]
  - Hallucination, auditory [None]
  - Mood altered [None]

NARRATIVE: CASE EVENT DATE: 20180520
